FAERS Safety Report 8336758-9 (Version None)
Quarter: 2012Q2

REPORT INFORMATION
  Report Type: 
  Country: None (occurrence: None)
  Receive Date: 20120504
  Receipt Date: 20120502
  Transmission Date: 20120825
  Serious: Yes (Life-Threatening, Hospitalization, Other)
  Sender: FDA-Public Use
  Company Number: DE-JNJFOC-20111109237

PATIENT
  Sex: Male
  Weight: 93 kg

DRUGS (3)
  1. ZYTIGA [Suspect]
     Indication: PROSTATE CANCER METASTATIC
     Route: 048
     Dates: start: 20110701, end: 20111101
  2. FENTANYL CITRATE [Concomitant]
     Route: 062
  3. PREDNISONE TAB [Concomitant]
     Route: 065

REACTIONS (7)
  - RHABDOMYOLYSIS [None]
  - PAIN [None]
  - RENAL FAILURE [None]
  - METASTASES TO MENINGES [None]
  - THROMBOCYTOPENIA [None]
  - BLOOD LACTATE DEHYDROGENASE INCREASED [None]
  - HAEMATOMA [None]
